FAERS Safety Report 19207131 (Version 3)
Quarter: 2022Q1

REPORT INFORMATION
  Report Type: Spontaneous
  Country: DE (occurrence: DE)
  Receive Date: 20210503
  Receipt Date: 20220105
  Transmission Date: 20220424
  Serious: Yes (Hospitalization, Other)
  Sender: FDA-Public Use
  Company Number: DE-NOVARTISPH-NVSC2021DE092458

PATIENT
  Sex: Female

DRUGS (6)
  1. PIQRAY [Suspect]
     Active Substance: ALPELISIB
     Indication: Metastases to breast
     Dosage: 200 MG, QD
     Route: 065
     Dates: start: 2020
  2. PIQRAY [Suspect]
     Active Substance: ALPELISIB
     Indication: Metastases to bone
     Dosage: UNK UNK, QD
     Route: 065
     Dates: start: 2021
  3. PIQRAY [Suspect]
     Active Substance: ALPELISIB
     Indication: Metastases to liver
  4. FULVESTRANT [Suspect]
     Active Substance: FULVESTRANT
     Indication: Metastases to breast
     Dosage: UNK
     Route: 065
  5. FULVESTRANT [Suspect]
     Active Substance: FULVESTRANT
     Indication: Metastases to bone
  6. FULVESTRANT [Suspect]
     Active Substance: FULVESTRANT
     Indication: Metastases to liver

REACTIONS (15)
  - Fall [Unknown]
  - Lower limb fracture [Unknown]
  - Femoral neck fracture [Unknown]
  - Ileus [Unknown]
  - Metastases to bone [Unknown]
  - Metastases to neck [Unknown]
  - Asthenia [Unknown]
  - Oral candidiasis [Unknown]
  - Mobility decreased [Unknown]
  - Decubitus ulcer [Unknown]
  - Impaired healing [Unknown]
  - Faeces hard [Unknown]
  - Stomatitis [Unknown]
  - Diarrhoea [Recovering/Resolving]
  - Rash [Unknown]

NARRATIVE: CASE EVENT DATE: 20210418
